FAERS Safety Report 9650691 (Version 3)
Quarter: 2015Q3

REPORT INFORMATION
  Report Type: Report from Study
  Country: FR (occurrence: FR)
  Receive Date: 20131029
  Receipt Date: 20150707
  Transmission Date: 20151125
  Serious: Yes (Other)
  Sender: FDA-Public Use
  Company Number: FR-ACTELION-A-CH2013-89986

PATIENT
  Age: 23 Year
  Sex: Male

DRUGS (1)
  1. ZAVESCA [Suspect]
     Active Substance: MIGLUSTAT
     Indication: NIEMANN-PICK DISEASE
     Dosage: 200 MG, TID
     Route: 048
     Dates: start: 20100402, end: 20130131

REACTIONS (4)
  - Pulmonary congestion [Unknown]
  - Concomitant disease aggravated [Unknown]
  - Weight decreased [Recovering/Resolving]
  - Dysphagia [Unknown]
